FAERS Safety Report 9165000 (Version 1)
Quarter: 2013Q1

REPORT INFORMATION
  Report Type: Spontaneous
  Country: GB (occurrence: None)
  Receive Date: 20130228
  Receipt Date: 20130228
  Transmission Date: 20140127
  Serious: Yes (Other)
  Sender: FDA-Public Use
  Company Number: 2013-00491

PATIENT
  Age: 67 Year
  Sex: Female

DRUGS (1)
  1. SIMVASTATIN [Suspect]
     Indication: TYPE IIA HYPERLIPIDAEMIA
     Dosage: (40 MG, 1 IN 1 D), UNKNOWN
     Dates: start: 20121121, end: 20130117

REACTIONS (5)
  - Lethargy [None]
  - Fatigue [None]
  - Depressed mood [None]
  - Abnormal dreams [None]
  - Sleep disorder [None]
